FAERS Safety Report 23991415 (Version 1)
Quarter: 2024Q2

REPORT INFORMATION
  Report Type: Spontaneous
  Country: ES (occurrence: ES)
  Receive Date: 20240619
  Receipt Date: 20240619
  Transmission Date: 20240716
  Serious: Yes (Hospitalization)
  Sender: FDA-Public Use
  Company Number: ES-Eisai-EC-2024-167808

PATIENT
  Age: 32 Year
  Sex: Female

DRUGS (2)
  1. PERAMPANEL [Suspect]
     Active Substance: PERAMPANEL
     Indication: Juvenile myoclonic epilepsy
     Route: 048
  2. PERAMPANEL [Suspect]
     Active Substance: PERAMPANEL
     Route: 048

REACTIONS (1)
  - Confusional state [Recovering/Resolving]
